FAERS Safety Report 18997909 (Version 1)
Quarter: 2021Q1

REPORT INFORMATION
  Report Type: Report from Study
  Country: EG (occurrence: EG)
  Receive Date: 20210311
  Receipt Date: 20210311
  Transmission Date: 20210420
  Serious: Yes (Hospitalization, Other)
  Sender: FDA-Public Use
  Company Number: NVSC2021EG052190

PATIENT
  Age: 42 Year

DRUGS (1)
  1. GLIVEC [Suspect]
     Active Substance: IMATINIB MESYLATE
     Indication: CHRONIC MYELOID LEUKAEMIA
     Dosage: 400 MG, QD (START DATE: 6?7 YEARS AGO, THE PATIENT COULDN?T REMEMBER EXACT TIME)
     Route: 065
     Dates: end: 202009

REACTIONS (4)
  - Lethargy [Recovering/Resolving]
  - White blood cell count increased [Not Recovered/Not Resolved]
  - Mobility decreased [Recovering/Resolving]
  - Pelvic fracture [Recovered/Resolved]

NARRATIVE: CASE EVENT DATE: 202011
